FAERS Safety Report 8855155 (Version 1)
Quarter: 2012Q4

REPORT INFORMATION
  Report Type: 
  Country: US (occurrence: US)
  Receive Date: 20121023
  Receipt Date: 20121023
  Transmission Date: 20130627
  Serious: No
  Sender: FDA-Public Use
  Company Number: US-VERTEX PHARMACEUTICAL INC.-2012-022996

PATIENT
  Age: 51 Year
  Sex: Male
  Weight: 121 kg

DRUGS (7)
  1. VX-950 [Suspect]
     Indication: HEPATITIS C
     Dosage: 750 mg, tid
     Route: 048
  2. PEGASYS [Concomitant]
     Indication: HEPATITIS C
     Dosage: 180 ?g, UNK
  3. RIBAVIRIN [Concomitant]
     Indication: HEPATITIS C
     Dosage: 200 UNK, UNK
  4. TYLENOL /00020001/ [Concomitant]
     Dosage: 500 mg, UNK
  5. IRON PLUS                          /01529801/ [Concomitant]
     Dosage: UNK
  6. CELEXA                             /00582602/ [Concomitant]
     Dosage: 10 mg, UNK
  7. FINASTERIDE [Concomitant]
     Dosage: 5 mg, UNK

REACTIONS (4)
  - Influenza like illness [Unknown]
  - Dry skin [Unknown]
  - Rash [Unknown]
  - Skin exfoliation [Unknown]
